FAERS Safety Report 24570006 (Version 1)
Quarter: 2024Q4

REPORT INFORMATION
  Report Type: Spontaneous
  Country: US (occurrence: US)
  Receive Date: 20241031
  Receipt Date: 20241031
  Transmission Date: 20250114
  Serious: No
  Sender: PFIZER
  Company Number: US-PFIZER INC-202400254130

PATIENT
  Age: 72 Year
  Sex: Female

DRUGS (3)
  1. TUKYSA [Suspect]
     Active Substance: TUCATINIB
     Indication: Breast cancer female
     Dosage: 2 DF, 2X/DAY
     Route: 048
     Dates: end: 202410
  2. CAPECITABINE [Concomitant]
     Active Substance: CAPECITABINE
     Dosage: 3 DF, 2X/DAY
  3. CAPECITABINE [Concomitant]
     Active Substance: CAPECITABINE
     Dosage: 2 DF, 2X/DAY

REACTIONS (3)
  - Off label use [Unknown]
  - Product dose omission issue [Unknown]
  - Asthenia [Unknown]
